FAERS Safety Report 10541535 (Version 1)
Quarter: 2014Q4

REPORT INFORMATION
  Report Type: Spontaneous
  Country: US (occurrence: None)
  Receive Date: 20141010
  Receipt Date: 20141010
  Transmission Date: 20150529
  Serious: No
  Sender: FDA-Public Use
  Company Number: 163-POMAL-14055476

PATIENT
  Age: 65 Year
  Sex: Female
  Weight: 64 kg

DRUGS (10)
  1. POMALYST [Suspect]
     Active Substance: POMALIDOMIDE
     Indication: PLASMA CELL MYELOMA
     Dosage: 1 IN 1 D
     Route: 048
     Dates: start: 201308
  2. DURAGESIC (FENTANYL) (UNKNOWN) [Concomitant]
  3. PROCHLORPERAZINE (PROCHLORPERAZINE) (UNKNOWN) [Concomitant]
  4. LORAZEPAM (LORAZEPAM) (UNKNOWN) (LORAZEPAM) [Concomitant]
     Active Substance: LORAZEPAM
  5. OXYCONTIN (OXYCODONE HYDROCHLORIDE) (UNKNOWN) [Concomitant]
  6. POTASSIUM CHLORIDE (POTASSIUM CHLORIDE) (UNKNOWN) [Concomitant]
  7. DEXAMETHASONE (DEXAMETHASONE) (UNKNOWN) [Concomitant]
     Active Substance: DEXAMETHASONE
  8. OXYCODONE (OXYCODONE) (UNKNOWN) (OXYCODONE) [Concomitant]
     Active Substance: OXYCODONE
  9. ZOLOFT (SERTRALINE HYDROCHLORIDE) (UNKNOWN) [Concomitant]
  10. ZOLPIDEM [Concomitant]
     Active Substance: ZOLPIDEM\ZOLPIDEM TARTRATE

REACTIONS (2)
  - Tooth disorder [None]
  - Gingival pain [None]
